FAERS Safety Report 8256773-3 (Version None)
Quarter: 2012Q2

REPORT INFORMATION
  Report Type: 
  Country: None (occurrence: None)
  Receive Date: 20120403
  Receipt Date: 20120326
  Transmission Date: 20120825
  Serious: Yes (Other)
  Sender: FDA-Public Use
  Company Number: US-JNJFOC-20120314439

PATIENT
  Sex: Male

DRUGS (8)
  1. MITOMYCIN [Suspect]
     Indication: HEPATIC NEOPLASM MALIGNANT
     Route: 042
  2. BEVACIZUMAB [Suspect]
     Indication: HEPATIC NEOPLASM MALIGNANT
     Route: 042
  3. ANTIEMETICS [Concomitant]
     Route: 065
  4. DOXORUBICIN HCL [Suspect]
     Indication: HEPATIC NEOPLASM MALIGNANT
     Route: 042
  5. CIPROFLOXACIN [Concomitant]
     Dosage: AFTER TACE
     Route: 065
  6. PAIN MEDICATION NOS [Concomitant]
     Route: 065
  7. CISPLATIN [Suspect]
     Indication: HEPATIC NEOPLASM MALIGNANT
     Route: 042
  8. METRONIDAZOLE [Concomitant]
     Dosage: AFTER TACE
     Route: 065

REACTIONS (3)
  - INCORRECT ROUTE OF DRUG ADMINISTRATION [None]
  - HEPATIC FUNCTION ABNORMAL [None]
  - HYPERBILIRUBINAEMIA [None]
